APPROVED DRUG PRODUCT: SUDAFED 12 HOUR
Active Ingredient: PSEUDOEPHEDRINE HYDROCHLORIDE
Strength: 120MG **Federal Register determination that product was not discontinued or withdrawn for safety or effectiveness reasons**
Dosage Form/Route: CAPSULE, EXTENDED RELEASE;ORAL
Application: N017941 | Product #002
Applicant: GLAXOSMITHKLINE
Approved: Approved Prior to Jan 1, 1982 | RLD: Yes | RS: No | Type: DISCN